FAERS Safety Report 7137919-7 (Version None)
Quarter: 2010Q4

REPORT INFORMATION
  Report Type: 
  Country: None (occurrence: None)
  Receive Date: 20101103
  Receipt Date: 20100505
  Transmission Date: 20110411
  Serious: Yes (Other)
  Sender: FDA-Public Use
  Company Number: 2010S1001338

PATIENT
  Age: 82 Year
  Sex: Male
  Weight: 75 kg

DRUGS (1)
  1. CUBICIN [Suspect]
     Indication: SKIN INFECTION
     Dosage: 6 MG/KG; Q24H; IV
     Route: 042

REACTIONS (1)
  - RENAL FAILURE CHRONIC [None]
